FAERS Safety Report 15328000 (Version 1)
Quarter: 2018Q3

REPORT INFORMATION
  Report Type: Report from Study
  Country: US (occurrence: US)
  Receive Date: 20180828
  Receipt Date: 20180828
  Transmission Date: 20181010
  Serious: Yes (Other)
  Sender: FDA-Public Use
  Company Number: US-JAZZ-2018-US-011894

PATIENT
  Sex: Female

DRUGS (19)
  1. COENZYME Q10 [Concomitant]
     Active Substance: UBIDECARENONE
  2. TRAMADOL. [Concomitant]
     Active Substance: TRAMADOL
  3. TRAZODONE [Concomitant]
     Active Substance: TRAZODONE HYDROCHLORIDE
  4. EFFEXOR [Concomitant]
     Active Substance: VENLAFAXINE HYDROCHLORIDE
  5. MAGNESIUM OXIDE. [Concomitant]
     Active Substance: MAGNESIUM OXIDE
  6. VITAMIN B12 [Concomitant]
     Active Substance: CYANOCOBALAMIN
  7. BOTOX [Concomitant]
     Active Substance: ONABOTULINUMTOXINA
  8. FROVA [Concomitant]
     Active Substance: FROVATRIPTAN SUCCINATE
  9. IBUPROFEN. [Concomitant]
     Active Substance: IBUPROFEN
  10. MIGRANAL [Concomitant]
     Active Substance: DIHYDROERGOTAMINE MESYLATE
  11. PROMETHAZINE [Concomitant]
     Active Substance: PROMETHAZINE\PROMETHAZINE HYDROCHLORIDE
  12. FLUOXETINE HCL [Concomitant]
     Active Substance: FLUOXETINE HYDROCHLORIDE
  13. TOPIRAMATE. [Concomitant]
     Active Substance: TOPIRAMATE
  14. RIBOFLAVIN [Concomitant]
     Active Substance: RIBOFLAVIN
  15. XYREM [Suspect]
     Active Substance: SODIUM OXYBATE
     Indication: NARCOLEPSY
     Dosage: 3 G, BID
     Route: 048
     Dates: start: 20180727
  16. XYREM [Suspect]
     Active Substance: SODIUM OXYBATE
     Indication: CATAPLEXY
  17. PERCOCET [Concomitant]
     Active Substance: ACETAMINOPHEN\OXYCODONE HYDROCHLORIDE
  18. ADDERALL [Concomitant]
     Active Substance: AMPHETAMINE ASPARTATE\AMPHETAMINE SULFATE\DEXTROAMPHETAMINE SACCHARATE\DEXTROAMPHETAMINE SULFATE
  19. GABAPENTIN. [Concomitant]
     Active Substance: GABAPENTIN

REACTIONS (6)
  - Migraine [Not Recovered/Not Resolved]
  - Diverticulitis [Not Recovered/Not Resolved]
  - Paraesthesia [Recovered/Resolved]
  - Anxiety [Not Recovered/Not Resolved]
  - Feeling abnormal [Not Recovered/Not Resolved]
  - Nocturia [Not Recovered/Not Resolved]

NARRATIVE: CASE EVENT DATE: 2018
